FAERS Safety Report 6206565-1 (Version None)
Quarter: 2009Q2

REPORT INFORMATION
  Report Type: 
  Country: None (occurrence: None)
  Receive Date: 20090528
  Receipt Date: 20090518
  Transmission Date: 20091009
  Serious: Yes (Hospitalization)
  Sender: FDA-Public Use
  Company Number: US-JNJFOC-20090505101

PATIENT

DRUGS (1)
  1. CHILDREN'S MOTRIN [Suspect]
     Indication: DRUG USE FOR UNKNOWN INDICATION

REACTIONS (3)
  - BLISTER [None]
  - BURN OF INTERNAL ORGANS [None]
  - INTERNAL INJURY [None]
